FAERS Safety Report 15335282 (Version 2)
Quarter: 2018Q4

REPORT INFORMATION
  Report Type: Spontaneous
  Country: DE (occurrence: DE)
  Receive Date: 20180830
  Receipt Date: 20181023
  Transmission Date: 20190204
  Serious: Yes (Congenital Anomaly, Other)
  Sender: FDA-Public Use
  Company Number: PHHY2018DE081354

PATIENT
  Sex: Female
  Weight: 3.02 kg

DRUGS (7)
  1. PREDNISOLON [Concomitant]
     Active Substance: PREDNISOLONE
     Indication: PROPHYLAXIS OF ABORTION
     Dosage: 15 MG, QD (0. - 20. GESTATIONAL WEEK)
     Route: 064
  2. ACTRAPID [Concomitant]
     Active Substance: INSULIN HUMAN
     Indication: GESTATIONAL DIABETES
     Dosage: 28 OT, QD
     Route: 064
  3. METOPROLOL. [Suspect]
     Active Substance: METOPROLOL
     Indication: GESTATIONAL HYPERTENSION
     Dosage: 125 MG, QD (32 - 38 GESTATIONAL WEEK)
     Route: 064
  4. FOLSAEURE [Concomitant]
     Active Substance: FOLIC ACID
     Indication: PROPHYLAXIS OF NEURAL TUBE DEFECT
     Dosage: 5 MG, QD
     Route: 064
     Dates: start: 20170320, end: 20171211
  5. SERTRALINE [Suspect]
     Active Substance: SERTRALINE HYDROCHLORIDE
     Indication: DEPRESSION
     Dosage: 200 MG, QD
     Route: 064
  6. LANTUS [Concomitant]
     Active Substance: INSULIN GLARGINE
     Indication: GESTATIONAL DIABETES
     Dosage: 12 OT, QD (24. - 25. GESTATIONAL WEEK)
     Route: 064
  7. L-THYROXINE [Concomitant]
     Active Substance: LEVOTHYROXINE
     Indication: AUTOIMMUNE THYROIDITIS
     Dosage: 200 UG, QD (0. - 38. GESTATIONAL WEEK)
     Route: 064

REACTIONS (4)
  - Agitation neonatal [Recovered/Resolved]
  - Renal dysplasia [Unknown]
  - Foetal exposure during pregnancy [Unknown]
  - Congenital hydronephrosis [Recovering/Resolving]
